FAERS Safety Report 5123431-3 (Version None)
Quarter: 2006Q4

REPORT INFORMATION
  Report Type: 
  Country: None (occurrence: None)
  Receive Date: 20061005
  Receipt Date: 20060925
  Transmission Date: 20070319
  Serious: Yes (Other)
  Sender: FDA-Public Use
  Company Number: 2006116800

PATIENT
  Age: 42 Year
  Sex: Male
  Weight: 104 kg

DRUGS (4)
  1. NEURONTIN [Suspect]
  2. AMITRIPTYLINE HYDROCHLORIDE [Suspect]
  3. OXYCONTIN [Concomitant]
  4. DOSULEPIN (DOSULEPIN) [Concomitant]

REACTIONS (1)
  - GYNAECOMASTIA [None]
